FAERS Safety Report 9180192 (Version 2)
Quarter: 2013Q2

REPORT INFORMATION
  Report Type: Report from Study
  Country: US (occurrence: US)
  Receive Date: 20130321
  Receipt Date: 20130419
  Transmission Date: 20140414
  Serious: Yes (Hospitalization, Other)
  Sender: FDA-Public Use
  Company Number: US-ABBOTT-13P-163-1059009-00

PATIENT
  Age: 21 Year
  Sex: Male
  Weight: 56.3 kg

DRUGS (1)
  1. HUMIRA [Suspect]
     Indication: CROHN^S DISEASE
     Dates: start: 20120912, end: 20130203

REACTIONS (14)
  - Necrosis [Unknown]
  - Crohn^s disease [Recovered/Resolved]
  - Crohn^s disease [Recovered/Resolved]
  - Drug ineffective [Recovered/Resolved]
  - Abdominal pain [Unknown]
  - Cellulitis [Unknown]
  - Crohn^s disease [Unknown]
  - Mesenteric abscess [Unknown]
  - Abdominal pain [Unknown]
  - Rectal haemorrhage [Unknown]
  - Intestinal perforation [Unknown]
  - Computerised tomogram abdomen abnormal [Unknown]
  - Crohn^s disease [Unknown]
  - Inflammatory bowel disease [Unknown]
